FAERS Safety Report 8999374 (Version 1)
Quarter: 2013Q1

REPORT INFORMATION
  Report Type: Spontaneous
  Country: GB (occurrence: GB)
  Receive Date: 20130103
  Receipt Date: 20130103
  Transmission Date: 20140127
  Serious: Yes (Hospitalization)
  Sender: FDA-Public Use
  Company Number: GB-009507513-1301GBR000158

PATIENT
  Sex: Female

DRUGS (11)
  1. ERTAPENEM SODIUM [Suspect]
     Indication: INTESTINAL PERFORATION
     Dosage: 1 G, UNK
     Route: 042
     Dates: start: 20110424, end: 20110505
  2. AMOXICILLIN [Suspect]
     Dosage: 500 MG, TID
     Route: 048
     Dates: start: 20110209, end: 20110216
  3. AMOXICILLIN [Suspect]
     Dosage: 500 MG, TID
     Route: 048
     Dates: start: 20110328, end: 20110404
  4. CEFACLOR [Suspect]
     Dosage: 375 MG, BID
     Route: 048
     Dates: start: 20110408, end: 20110415
  5. FLUCONAZOLE [Suspect]
     Indication: ORAL CANDIDIASIS
     Dosage: 50 MG, UNK
     Route: 048
     Dates: start: 20110429, end: 20110504
  6. ALVERINE CITRATE [Concomitant]
     Dosage: 120 MG, TID
     Route: 048
  7. ASPIRIN [Concomitant]
     Dosage: 75 MG, QD
     Route: 048
  8. BUTYLSCOPOLAMINE BROMIDE [Concomitant]
     Dosage: 10 MG, TID
     Route: 048
     Dates: start: 20110310
  9. LACTULOSE [Concomitant]
     Dosage: 15 ML, BID
     Route: 048
  10. LERCANIDIPINE [Concomitant]
     Dosage: 10 MG, QD
     Route: 048
  11. SIMVASTATIN [Concomitant]
     Dosage: 20 MG, QD
     Route: 048

REACTIONS (3)
  - Clostridium difficile infection [Recovered/Resolved]
  - Diarrhoea [Recovered/Resolved]
  - White blood cell count increased [Recovered/Resolved]
